FAERS Safety Report 20347684 (Version 3)
Quarter: 2022Q1

REPORT INFORMATION
  Report Type: Report from Study
  Country: US (occurrence: US)
  Receive Date: 20220118
  Receipt Date: 20220124
  Transmission Date: 20220424
  Serious: Yes (Death, Other)
  Sender: FDA-Public Use
  Company Number: US-GILEAD-2022-0565387

PATIENT
  Age: 68 Year
  Sex: Male

DRUGS (2)
  1. IDELALISIB [Suspect]
     Active Substance: IDELALISIB
     Indication: Neoplasm malignant
     Dosage: 150 MG, BID
     Route: 048
     Dates: start: 202107, end: 20220111
  2. IDELALISIB [Suspect]
     Active Substance: IDELALISIB
     Indication: B-cell lymphoma stage I

REACTIONS (1)
  - Death [Fatal]

NARRATIVE: CASE EVENT DATE: 20220111
